FAERS Safety Report 7788143-6 (Version None)
Quarter: 2011Q3

REPORT INFORMATION
  Report Type: 
  Country: None (occurrence: None)
  Receive Date: 20110927
  Receipt Date: 20110912
  Transmission Date: 20111222
  Serious: Yes (Disabling)
  Sender: FDA-Public Use
  Company Number: AUR-APL-2011-05041

PATIENT
  Age: 73 Year
  Sex: Female
  Weight: 90 kg

DRUGS (16)
  1. DIPYRIDAMOLE [Concomitant]
  2. NITROFURANTOIN [Concomitant]
  3. RAMIPRIL [Concomitant]
  4. RANITIDINE (IRANITIDINE) [Concomitant]
  5. DIAZEPAM [Concomitant]
  6. TIMODINE (TIMODINE) [Concomitant]
  7. RISPERIDONE [Suspect]
     Indication: PRODUCT USED FOR UNKNOWN INDICATION
     Dates: start: 20110512
  8. AMOXICILLIN [Concomitant]
  9. ASPIRIN [Concomitant]
  10. LAXIDO (MACROGOL 3350) [Concomitant]
  11. STARCH (STARCH) [Concomitant]
  12. CEPHALEXIN [Concomitant]
  13. SIMVASTATIN [Concomitant]
  14. CO-CODAMOL (PANEDEINE CO) [Concomitant]
  15. LEVOTHYROXINE SODIUM [Concomitant]
  16. ACETAMINOPHEN [Concomitant]

REACTIONS (5)
  - MALAISE [None]
  - HYPOTHERMIA [None]
  - SCHIZOPHRENIA, PARANOID TYPE [None]
  - AGITATION [None]
  - CONDITION AGGRAVATED [None]
